FAERS Safety Report 11679138 (Version 1)
Quarter: 2015Q4

REPORT INFORMATION
  Report Type: Spontaneous
  Country: US (occurrence: US)
  Receive Date: 20151027
  Receipt Date: 20151027
  Transmission Date: 20160304
  Serious: Yes (Other)
  Sender: FDA-Public Use
  Company Number: US-ELI_LILLY_AND_COMPANY-US201011006969

PATIENT
  Sex: Female

DRUGS (1)
  1. FORTEO [Suspect]
     Active Substance: TERIPARATIDE
     Indication: OSTEOPOROSIS
     Dosage: UNK, UNKNOWN
     Route: 065

REACTIONS (7)
  - Insomnia [Unknown]
  - Palpitations [Unknown]
  - Headache [Unknown]
  - Hypertension [Recovered/Resolved]
  - Anxiety [Unknown]
  - Malaise [Unknown]
  - Hyperhidrosis [Unknown]
